FAERS Safety Report 10092273 (Version 3)
Quarter: 2019Q1

REPORT INFORMATION
  Report Type: Spontaneous
  Country: US (occurrence: US)
  Receive Date: 20140421
  Receipt Date: 20190222
  Transmission Date: 20190417
  Serious: No
  Sender: FDA-Public Use
  Company Number: US-SANOFI-AVENTIS-2013SA048719

PATIENT
  Age: 77 Year
  Sex: Male

DRUGS (2)
  1. ALLEGRA ALLERGY [Suspect]
     Active Substance: FEXOFENADINE HYDROCHLORIDE
     Indication: HYPERSENSITIVITY
     Dosage: 180 MG,QD
     Route: 048
  2. ALLEGRA ALLERGY [Suspect]
     Active Substance: FEXOFENADINE HYDROCHLORIDE
     Dosage: 180 MG,QD
     Route: 048

REACTIONS (6)
  - Speech disorder [Unknown]
  - Drug ineffective [Unknown]
  - Therapeutic response decreased [Unknown]
  - Fatigue [Unknown]
  - Aphthous ulcer [Unknown]
  - Somnolence [Unknown]
